FAERS Safety Report 20664334 (Version 3)
Quarter: 2022Q2

REPORT INFORMATION
  Report Type: Spontaneous
  Country: FR (occurrence: FR)
  Receive Date: 20220401
  Receipt Date: 20220511
  Transmission Date: 20220721
  Serious: Yes (Hospitalization)
  Sender: FDA-Public Use
  Company Number: None

PATIENT
  Age: 23 Year
  Sex: Female

DRUGS (15)
  1. BROMAZEPAM [Suspect]
     Active Substance: BROMAZEPAM
     Indication: Boredom
     Dosage: 15 MILLIGRAM, QD
     Route: 048
  2. BROMAZEPAM [Suspect]
     Active Substance: BROMAZEPAM
     Indication: Anxiolytic therapy
  3. BROMAZEPAM [Suspect]
     Active Substance: BROMAZEPAM
     Indication: Anhedonia
  4. XANAX [Suspect]
     Active Substance: ALPRAZOLAM
     Indication: Anxiolytic therapy
     Dosage: UNK
     Route: 048
  5. XANAX [Suspect]
     Active Substance: ALPRAZOLAM
     Indication: Boredom
  6. XANAX [Suspect]
     Active Substance: ALPRAZOLAM
     Indication: Anhedonia
  7. LYSERGIDE [Suspect]
     Active Substance: LYSERGIDE
     Indication: Product used for unknown indication
     Dosage: 5 DOSAGE FORM, MONTHLY (5 BLOTTERS /TAKEN ONCE/MONTH)
     Route: 048
  8. CLONAZEPAM [Suspect]
     Active Substance: CLONAZEPAM
     Indication: Boredom
     Dosage: 3 TO 4 MG/D
     Route: 048
  9. CLONAZEPAM [Suspect]
     Active Substance: CLONAZEPAM
     Indication: Anhedonia
  10. CLONAZEPAM [Suspect]
     Active Substance: CLONAZEPAM
     Indication: Anxiolytic therapy
  11. CANNABIS SATIVA SUBSP. INDICA TOP [Suspect]
     Active Substance: CANNABIS SATIVA SUBSP. INDICA TOP
     Indication: Product used for unknown indication
     Dosage: UNK UNK, QD
     Route: 055
  12. CANNABIS SATIVA SUBSP. INDICA TOP [Suspect]
     Active Substance: CANNABIS SATIVA SUBSP. INDICA TOP
     Dosage: 10 DOSAGE FORM, QD (10 JOINTS/DAY)
     Route: 055
  13. KETAMINE [Suspect]
     Active Substance: KETAMINE
     Indication: Product used for unknown indication
     Dosage: 1 TO 2 TIMES/MONTH
     Route: 065
  14. CAFFEINE [Suspect]
     Active Substance: CAFFEINE
     Indication: Fatigue
     Dosage: 200 MILLIGRAM, QD (200 MG, QD)
     Route: 048
  15. CAFFEINE [Suspect]
     Active Substance: CAFFEINE
     Dosage: 200 MILLIGRAM (200 MILLIGRAM/DOSE)
     Route: 048

REACTIONS (6)
  - Drug use disorder [Not Recovered/Not Resolved]
  - Device use issue [Not Recovered/Not Resolved]
  - Product use in unapproved indication [Not Recovered/Not Resolved]
  - Drug dependence [Unknown]
  - Cognitive disorder [Unknown]
  - Antisocial behaviour [Unknown]
